FAERS Safety Report 9516581 (Version 5)
Quarter: 2013Q4

REPORT INFORMATION
  Report Type: Spontaneous
  Country: US (occurrence: US)
  Receive Date: 20130911
  Receipt Date: 20131023
  Transmission Date: 20140711
  Serious: Yes (Other)
  Sender: FDA-Public Use
  Company Number: US-VERTEX PHARMACEUTICALS INC-2013-009384

PATIENT
  Age: 64 Year
  Sex: Male
  Weight: 113 kg

DRUGS (3)
  1. INCIVEK [Suspect]
     Indication: HEPATITIS C
     Dosage: 750 MG, TID
     Route: 048
     Dates: start: 20130906, end: 20130927
  2. RIBAVIRIN [Suspect]
     Indication: HEPATITIS C
     Dosage: 1400 MG, QD
     Route: 048
     Dates: start: 20130907, end: 20130927
  3. PEGINTRON [Suspect]
     Indication: HEPATITIS C
     Dosage: 150 ?G, QW
     Route: 058
     Dates: start: 20130906, end: 20130927

REACTIONS (13)
  - Renal failure acute [Recovered/Resolved]
  - Blood creatinine increased [Recovered/Resolved]
  - Diarrhoea [Recovered/Resolved]
  - Pyrexia [Not Recovered/Not Resolved]
  - Injection site erythema [Not Recovered/Not Resolved]
  - Abdominal distension [Not Recovered/Not Resolved]
  - Abdominal discomfort [Recovered/Resolved]
  - Eating disorder symptom [Not Recovered/Not Resolved]
  - Abdominal pain [Not Recovered/Not Resolved]
  - Oral mucosal eruption [Not Recovered/Not Resolved]
  - Rash [Recovered/Resolved]
  - Nausea [Recovered/Resolved]
  - Dysgeusia [Not Recovered/Not Resolved]
